FAERS Safety Report 7285807-8 (Version None)
Quarter: 2011Q1

REPORT INFORMATION
  Report Type: 
  Country: None (occurrence: None)
  Receive Date: 20110210
  Receipt Date: 20110204
  Transmission Date: 20110831
  Serious: Yes (Death)
  Sender: FDA-Public Use
  Company Number: US-ACTELION-A-NJ2011-44842

PATIENT

DRUGS (3)
  1. VELETRI [Suspect]
     Indication: PULMONARY ARTERIAL HYPERTENSION
     Dosage: 14 NG/KG, PER MIN
     Route: 041
     Dates: start: 20110201, end: 20110204
  2. VELETRI [Suspect]
     Dosage: 18 NG/KG, PER MIN
     Route: 041
     Dates: start: 20110112, end: 20110131
  3. AMBRISENTAN [Concomitant]

REACTIONS (2)
  - DEATH [None]
  - MALAISE [None]
